FAERS Safety Report 9305612 (Version 2)
Quarter: 2014Q2

REPORT INFORMATION
  Report Type: Spontaneous
  Country: JP (occurrence: None)
  Receive Date: 20130111
  Receipt Date: 20140411
  Transmission Date: 20141212
  Serious: Yes (Hospitalization, Other)
  Sender: FDA-Public Use
  Company Number: ADR-2010-9174

PATIENT
  Age: 9 Year
  Sex: Male

DRUGS (7)
  1. GABALON [Suspect]
     Indication: MUSCLE SPASTICITY
     Dosage: SEE B5
     Route: 037
  2. CERCINE POWDER [Concomitant]
  3. PHENOBAL [Concomitant]
  4. ARTANE [Concomitant]
  5. TEGRETOL [Concomitant]
  6. DIAMOX [Concomitant]
  7. TERNELIN [Suspect]
     Indication: MUSCLE SPASMS
     Dates: start: 20091110, end: 20101207

REACTIONS (8)
  - Obstructive airways disorder [None]
  - Hypotonia [None]
  - Overdose [None]
  - Glossoptosis [None]
  - Respiratory failure [None]
  - Apnoea [None]
  - Pre-existing disease [None]
  - Disease progression [None]
